FAERS Safety Report 10183896 (Version 1)
Quarter: 2014Q2

REPORT INFORMATION
  Report Type: Spontaneous
  Country: GB (occurrence: GB)
  Receive Date: 20140520
  Receipt Date: 20140520
  Transmission Date: 20141212
  Serious: Yes (Other)
  Sender: FDA-Public Use
  Company Number: GB-PFIZER INC-2014135543

PATIENT
  Age: 41 Year
  Sex: Female
  Weight: 124 kg

DRUGS (9)
  1. VENLAFAXINE HCL [Suspect]
     Indication: DEPRESSION
     Dosage: LOW DOSE
     Route: 048
  2. VENLAFAXINE HCL [Suspect]
     Dosage: 225 MG, UNK
  3. VENLAFAXINE HCL [Suspect]
     Dosage: 300 MG, UNK
     Dates: start: 20140415
  4. DOCUSATE [Concomitant]
     Dosage: UNK
  5. METFORMIN [Concomitant]
     Dosage: 500 MG, 2X/DAY
  6. MIRTAZAPINE [Concomitant]
     Dosage: 15 MG, UNK
     Dates: start: 20140222, end: 20140501
  7. SIMVASTATIN [Concomitant]
     Dosage: UNK
  8. VALPROATE SODIUM [Concomitant]
     Dosage: UNK
  9. OMEPRAZOLE [Concomitant]
     Dosage: 10 MG, UNK

REACTIONS (8)
  - Agitation [Not Recovered/Not Resolved]
  - Nausea [Not Recovered/Not Resolved]
  - Restlessness [Not Recovered/Not Resolved]
  - Abnormal dreams [Not Recovered/Not Resolved]
  - Irritability [Not Recovered/Not Resolved]
  - Panic reaction [Not Recovered/Not Resolved]
  - Crying [Not Recovered/Not Resolved]
  - Tachyphrenia [Not Recovered/Not Resolved]
